FAERS Safety Report 22040623 (Version 2)
Quarter: 2023Q1

REPORT INFORMATION
  Report Type: Spontaneous
  Country: NO (occurrence: NO)
  Receive Date: 20230227
  Receipt Date: 20230301
  Transmission Date: 20230417
  Serious: Yes (Hospitalization)
  Sender: FDA-Public Use
  Company Number: None

PATIENT
  Age: 16 Year
  Sex: Female

DRUGS (5)
  1. ABILIFY [Suspect]
     Active Substance: ARIPIPRAZOLE
     Indication: Antipsychotic therapy
     Dosage: 2.5 MG, QD
     Route: 065
     Dates: start: 20230109, end: 20230116
  2. ABILIFY [Suspect]
     Active Substance: ARIPIPRAZOLE
     Dosage: 5 MG, QD
     Route: 065
     Dates: start: 20230116, end: 20230123
  3. ABILIFY [Suspect]
     Active Substance: ARIPIPRAZOLE
     Dosage: 10 MG, QD
     Route: 065
     Dates: start: 20230123, end: 20230131
  4. ABILIFY [Suspect]
     Active Substance: ARIPIPRAZOLE
     Dosage: DISCONTINUATION OF THERAPY THROUGH TAPERING OF DOSE FROM 10 MG VIA 5 MG AND 2.5 MG.
     Route: 065
     Dates: start: 20230131, end: 20230206
  5. ZYPREXA [Concomitant]
     Active Substance: OLANZAPINE
     Indication: Antipsychotic therapy
     Dosage: THE PATIENT HAD USED ZYPREXA SINCE DECEMBER 2022
     Route: 065
     Dates: start: 202212, end: 20230123

REACTIONS (11)
  - Pallor [Recovering/Resolving]
  - Parkinsonian gait [Recovering/Resolving]
  - Feeling abnormal [Recovering/Resolving]
  - Nausea [Recovering/Resolving]
  - Extrapyramidal disorder [Recovering/Resolving]
  - Dry mouth [Recovering/Resolving]
  - Tremor [Recovering/Resolving]
  - Akathisia [Recovering/Resolving]
  - Fatigue [Recovering/Resolving]
  - Vomiting [Recovering/Resolving]
  - Product use in unapproved indication [Unknown]

NARRATIVE: CASE EVENT DATE: 20230109
